FAERS Safety Report 7294713-4 (Version None)
Quarter: 2011Q1

REPORT INFORMATION
  Report Type: 
  Country: None (occurrence: None)
  Receive Date: 20110203
  Receipt Date: 20110121
  Transmission Date: 20110831
  Serious: Yes (Other)
  Sender: FDA-Public Use
  Company Number: 025987

PATIENT
  Sex: Female
  Weight: 54.4316 kg

DRUGS (2)
  1. ANTIHYPERTENSIVES [Concomitant]
  2. CIMZIA [Suspect]
     Indication: RHEUMATOID ARTHRITIS
     Dosage: ONCE A MONTH SUBCUTANEOUS
     Route: 058
     Dates: start: 20101125

REACTIONS (3)
  - ERYTHEMA [None]
  - RASH [None]
  - SKIN EXFOLIATION [None]
